FAERS Safety Report 4289232-3 (Version None)
Quarter: 2004Q1

REPORT INFORMATION
  Report Type: 
  Country: None (occurrence: None)
  Receive Date: 20040206
  Receipt Date: 20040128
  Transmission Date: 20041129
  Serious: Yes (Hospitalization, Other)
  Sender: FDA-Public Use
  Company Number: 2004005973

PATIENT
  Sex: Female
  Weight: 115 kg

DRUGS (9)
  1. ACCURETIC [Suspect]
     Indication: HYPERTENSION
     Dosage: 20/12.5 MG (DAILY), ORAL
     Route: 048
     Dates: start: 20031110
  2. ACCUPRON (QUINAPRIL, HYDROCHLOROTHIAZIDE) [Suspect]
     Indication: HYPERTENSION
     Dosage: 20/ MG (DAILY), ORAL
     Route: 048
     Dates: start: 20031202, end: 20031210
  3. CLINDAMYCIN (CLINDAMYCIN) [Suspect]
     Indication: SOFT TISSUE INFLAMMATION
     Dosage: 1800 MG (TID), INTRAVENOUS
     Route: 042
     Dates: start: 20031127, end: 20031210
  4. PIPERACILLIN [Suspect]
     Indication: SOFT TISSUE INFLAMMATION
     Dosage: (QID), INTRAVENOUS
     Route: 042
     Dates: start: 20031127, end: 20031210
  5. METFORMIN HCL [Concomitant]
  6. TROXERUTIN (TROXERUTIN) [Concomitant]
  7. ORLISTAT (ORLISTAT) [Concomitant]
  8. SACCHAROMYCES BOULARDII (SACCHAROMYCES BOULARDII) [Concomitant]
  9. .. [Concomitant]

REACTIONS (5)
  - HAEMATOCRIT DECREASED [None]
  - LEUKOPENIA [None]
  - NEUTROPENIA [None]
  - PSEUDOMONAS INFECTION [None]
  - STAPHYLOCOCCAL INFECTION [None]
